FAERS Safety Report 4520434-4 (Version None)
Quarter: 2004Q4

REPORT INFORMATION
  Report Type: 
  Country: None (occurrence: None)
  Receive Date: 20041206
  Receipt Date: 20041130
  Transmission Date: 20050328
  Serious: Yes (Hospitalization, Other)
  Sender: FDA-Public Use
  Company Number: FRWYE227123NOV04

PATIENT
  Age: 76 Year
  Sex: Female

DRUGS (6)
  1. EFFEXOR [Suspect]
     Indication: ANXIETY
     Dosage: 50 MG 3X PER 1 DAY ORAL
     Route: 048
     Dates: start: 20040907
  2. EFFEXOR [Suspect]
     Indication: PANIC ATTACK
     Dosage: 50 MG 3X PER 1 DAY ORAL
     Route: 048
     Dates: start: 20040907
  3. LITHIUM CARBONATE [Suspect]
     Indication: BIPOLAR II DISORDER
     Dosage: SEE IMAGE
     Route: 048
     Dates: end: 20040922
  4. LITHIUM CARBONATE [Suspect]
     Indication: BIPOLAR II DISORDER
     Dosage: SEE IMAGE
     Route: 048
     Dates: start: 20040923
  5. IMOVANE (ZOPICLONE) [Concomitant]
  6. LEVOTHYROXINE SODIUM [Concomitant]

REACTIONS (10)
  - AKINESIA [None]
  - ANTIPSYCHOTIC DRUG LEVEL ABOVE THERAPEUTIC [None]
  - CONFUSIONAL STATE [None]
  - DRUG INTERACTION [None]
  - ELECTROCARDIOGRAM REPOLARISATION ABNORMALITY [None]
  - MYOCLONUS [None]
  - SYSTOLIC HYPERTENSION [None]
  - TACHYCARDIA [None]
  - TREMOR [None]
  - VERTIGO [None]
